FAERS Safety Report 9269952 (Version 3)
Quarter: 2014Q2

REPORT INFORMATION
  Report Type: Report from Study
  Country: AU (occurrence: AU)
  Receive Date: 20130503
  Receipt Date: 20140620
  Transmission Date: 20141212
  Serious: Yes (Death)
  Sender: FDA-Public Use
  Company Number: AU-PFIZER INC-2013134612

PATIENT
  Age: 15 Year
  Sex: Male

DRUGS (3)
  1. MORPHINE SULFATE [Suspect]
     Dosage: UNK
  2. QUETIAPINE [Interacting]
     Dosage: UNK
  3. OXYCODONE [Interacting]
     Dosage: UNK

REACTIONS (3)
  - Overdose [Fatal]
  - Drug interaction [Fatal]
  - Toxicity to various agents [Fatal]
